FAERS Safety Report 20224625 (Version 1)
Quarter: 2021Q4

REPORT INFORMATION
  Report Type: Spontaneous
  Country: AU (occurrence: AU)
  Receive Date: 20211223
  Receipt Date: 20211223
  Transmission Date: 20220303
  Serious: Yes (Death, Hospitalization)
  Sender: FDA-Public Use
  Company Number: AU-MEDA-M-EU-2011070025

PATIENT
  Age: 49 Year
  Sex: Female

DRUGS (3)
  1. EPIPEN [Suspect]
     Active Substance: EPINEPHRINE
     Indication: Anaphylaxis treatment
     Dosage: 300 ?G, UNK
     Route: 030
  2. PREDNISONE [Suspect]
     Active Substance: PREDNISONE
     Indication: Anaphylaxis treatment
     Dosage: 50 MG, UNK
     Route: 048
  3. PROMETHAZINE HYDROCHLORIDE [Suspect]
     Active Substance: PROMETHAZINE HYDROCHLORIDE
     Indication: Anaphylaxis treatment
     Dosage: 50 MG, UNK
     Route: 030

REACTIONS (2)
  - Gas gangrene [Fatal]
  - Medication error [Unknown]
